FAERS Safety Report 10566500 (Version 5)
Quarter: 2015Q2

REPORT INFORMATION
  Report Type: Spontaneous
  Country: BR (occurrence: BR)
  Receive Date: 20141105
  Receipt Date: 20150511
  Transmission Date: 20150821
  Serious: Yes (Other)
  Sender: FDA-Public Use
  Company Number: BR-PFIZER INC-2014194402

PATIENT
  Age: 47 Year
  Sex: Female
  Weight: 55 kg

DRUGS (4)
  1. SUTENT [Suspect]
     Active Substance: SUNITINIB MALATE
     Dosage: UNK
     Route: 048
  2. SYNTHROID [Concomitant]
     Active Substance: LEVOTHYROXINE SODIUM
     Indication: THYROID DISORDER
     Dosage: 100 MG, 1X/DAY
  3. SUTENT [Suspect]
     Active Substance: SUNITINIB MALATE
     Indication: RENAL CELL CARCINOMA
     Dosage: 50 MG, CYCLIC (4X2)
     Route: 048
     Dates: start: 20140612
  4. SUTENT [Suspect]
     Active Substance: SUNITINIB MALATE
     Dosage: 37.5 MG, CYCLIC (4X2)
     Route: 048
     Dates: start: 20140612

REACTIONS (24)
  - Mucosal inflammation [Not Recovered/Not Resolved]
  - Hyperacusis [Unknown]
  - Lip dry [Unknown]
  - Oral discomfort [Not Recovered/Not Resolved]
  - Mouth swelling [Unknown]
  - Tongue injury [Unknown]
  - Constipation [Unknown]
  - Dry skin [Unknown]
  - Oral discomfort [Unknown]
  - Blood thyroid stimulating hormone increased [Not Recovered/Not Resolved]
  - Tremor [Unknown]
  - Nasal dryness [Unknown]
  - Acne [Unknown]
  - Oral mucosal erythema [Unknown]
  - Tooth abscess [Unknown]
  - Scab [Unknown]
  - Rash [Unknown]
  - Eye swelling [Unknown]
  - Dizziness [Not Recovered/Not Resolved]
  - Pruritus [Unknown]
  - Mouth injury [Unknown]
  - Feeding disorder [Unknown]
  - Gingival disorder [Unknown]
  - Tension headache [Not Recovered/Not Resolved]

NARRATIVE: CASE EVENT DATE: 2014
